FAERS Safety Report 23868464 (Version 1)
Quarter: 2024Q2

REPORT INFORMATION
  Report Type: Spontaneous
  Country: ZA (occurrence: None)
  Receive Date: 20240517
  Receipt Date: 20240517
  Transmission Date: 20240715
  Serious: Yes (Other)
  Sender: FDA-Public Use
  Company Number: 2024A112501

PATIENT
  Age: 65 Year
  Sex: Male

DRUGS (15)
  1. DAPAGLIFLOZIN [Suspect]
     Active Substance: DAPAGLIFLOZIN
     Indication: Type 2 diabetes mellitus
     Route: 048
  2. UROMAX [Concomitant]
     Indication: Hypertonic bladder
     Route: 048
  3. SERDEP [Concomitant]
     Indication: Prophylaxis
     Route: 048
  4. GLUCOVANCE 500/2.5 500 [Concomitant]
     Indication: Type 2 diabetes mellitus
     Route: 048
  5. SIMVASTATIN [Concomitant]
     Active Substance: SIMVASTATIN
     Indication: Blood cholesterol
     Route: 048
  6. ADCO-ZETOMAX [Concomitant]
     Indication: Hypertension
     Route: 048
  7. ZOLPIDEM TARTRATE [Concomitant]
     Active Substance: ZOLPIDEM TARTRATE
     Indication: Insomnia
     Route: 048
  8. MELOXICAM [Concomitant]
     Active Substance: MELOXICAM
     Indication: Pain
     Route: 048
  9. ADVIL COLD AND SINUS [Concomitant]
     Active Substance: IBUPROFEN\PSEUDOEPHEDRINE HYDROCHLORIDE
     Route: 048
  10. ALLERGEX [Concomitant]
     Route: 048
  11. FLUSIN F EFF [Concomitant]
     Route: 048
  12. LINCTAGON-C ORANGE [Concomitant]
     Route: 048
  13. MYBULEN [Concomitant]
     Route: 048
  14. DIETARY SUPPLEMENT\HERBALS [Concomitant]
     Active Substance: DIETARY SUPPLEMENT\HERBALS
     Route: 048
  15. SINUSTAT [Concomitant]
     Route: 048

REACTIONS (1)
  - Prostate cancer [Unknown]
